FAERS Safety Report 10874832 (Version 1)
Quarter: 2015Q1

REPORT INFORMATION
  Report Type: Spontaneous
  Country: US (occurrence: US)
  Receive Date: 20150227
  Receipt Date: 20150227
  Transmission Date: 20150721
  Serious: Yes (Death)
  Sender: FDA-Public Use
  Company Number: US-BANPHARM-20153527

PATIENT
  Age: 19 Year
  Sex: Male

DRUGS (2)
  1. DIPHENHYDRAMINE UNKNOWN PRODUCT/ACETAMINOPHEN [Suspect]
     Active Substance: ACETAMINOPHEN\DIPHENHYDRAMINE
  2. SALICYLATE [Suspect]
     Active Substance: SALICYLIC ACID

REACTIONS (2)
  - Completed suicide [Fatal]
  - Exposure via ingestion [None]
